FAERS Safety Report 7574830-1 (Version None)
Quarter: 2011Q2

REPORT INFORMATION
  Report Type: 
  Country: None (occurrence: None)
  Receive Date: 20110627
  Receipt Date: 20080312
  Transmission Date: 20111010
  Serious: Yes (Other)
  Sender: FDA-Public Use
  Company Number: US-BAYER-200817213NA

PATIENT
  Age: 64 Year
  Sex: Female
  Weight: 63 kg

DRUGS (20)
  1. ACETYLSALICYLIC ACID SRT [Concomitant]
     Dosage: 81 MG
     Route: 048
  2. FOLIC ACID [Concomitant]
     Dosage: 1 MG
     Route: 048
  3. NOREPINEPHRINE BITARTRATE [Concomitant]
     Dosage: UNK
     Route: 042
     Dates: start: 20060112
  4. ANCEF [Concomitant]
     Dosage: 2 GRAMS EVERY 8 HOURS TIMES 3 DOSES
     Route: 042
     Dates: start: 20060112, end: 20060113
  5. NITROGLYCERIN [Concomitant]
     Dosage: UNK
     Route: 042
     Dates: start: 20060112
  6. ESMOLOL [Concomitant]
     Dosage: UNK
     Route: 042
     Dates: start: 20060112, end: 20060112
  7. ATENOLOL [Concomitant]
     Dosage: 50 MG
  8. METHOTREXATE [Concomitant]
     Dosage: 2.5 MG ON THURSDAYS
     Route: 048
  9. PROTAMINE SULFATE [Concomitant]
     Dosage: UNK
     Route: 042
     Dates: start: 20060112, end: 20060112
  10. TRASYLOL [Suspect]
     Indication: CORONARY ARTERY BYPASS
     Dosage: 1 ML, ONCE
     Route: 042
     Dates: start: 20060112, end: 20060112
  11. TRASYLOL [Suspect]
     Dosage: 200 ML LOADING DOSE
     Route: 042
     Dates: start: 20060112, end: 20060112
  12. DOPAMINE HCL [Concomitant]
     Dosage: UNK
     Route: 042
     Dates: start: 20060112
  13. HEPARIN [Concomitant]
     Dosage: UNK
     Route: 042
     Dates: start: 20060112, end: 20060112
  14. PAPAVERINE [Concomitant]
     Dosage: UNK
     Route: 042
     Dates: start: 20060112, end: 20060112
  15. NIPRIDE [Concomitant]
     Dosage: UNK
     Route: 042
     Dates: start: 20060112
  16. TRASYLOL [Suspect]
     Dosage: 50 ML/HR INFUSION
     Route: 042
     Dates: start: 20060112, end: 20060112
  17. LEVOXYL [Concomitant]
     Dosage: 150 MG
     Route: 048
  18. MONOPRIL [Concomitant]
     Dosage: 20 MG
     Route: 048
  19. ESTRADIOL [Concomitant]
  20. LOVASTATIN [Concomitant]
     Dosage: 10 MG
     Route: 048

REACTIONS (10)
  - UNEVALUABLE EVENT [None]
  - ANHEDONIA [None]
  - CARDIAC FAILURE [None]
  - INJURY [None]
  - DEPRESSION [None]
  - MYOCARDIAL INFARCTION [None]
  - RENAL FAILURE [None]
  - ANXIETY [None]
  - FEAR [None]
  - PAIN [None]
